FAERS Safety Report 9735047 (Version 1)
Quarter: 2013Q4

REPORT INFORMATION
  Report Type: Spontaneous
  Country: US (occurrence: US)
  Receive Date: 20131206
  Receipt Date: 20131206
  Transmission Date: 20140711
  Serious: Yes (Other)
  Sender: FDA-Public Use
  Company Number: US-BAYER-2013-147483

PATIENT
  Age: 43 Year
  Sex: Female
  Weight: 81.63 kg

DRUGS (12)
  1. YASMIN [Suspect]
  2. PROTONIX [Concomitant]
     Dosage: 40 MG, UNK
  3. SYNTHROID [Concomitant]
  4. PLAQUENIL [Concomitant]
  5. TOPAMAX [Concomitant]
     Dosage: 100 MG, UNK
  6. CALAN [VERAPAMIL HYDROCHLORIDE] [Concomitant]
  7. PROVIGIL [Concomitant]
     Dosage: 200 MG, UNK
  8. RELPAX [Concomitant]
     Dosage: 40 MG, UNK
  9. LEVAQUIN [Concomitant]
     Indication: UPPER RESPIRATORY TRACT INFECTION
  10. METHOTREXATE [Concomitant]
     Indication: SJOGREN^S SYNDROME
     Dosage: 2.5 MG, UNK
  11. PREDNISONE [Concomitant]
     Indication: SJOGREN^S SYNDROME
  12. FOLIC ACID [Concomitant]

REACTIONS (3)
  - Cholecystitis chronic [None]
  - Thrombophlebitis superficial [None]
  - Thrombophlebitis superficial [None]
